FAERS Safety Report 8334242-X (Version None)
Quarter: 2012Q2

REPORT INFORMATION
  Report Type: 
  Country: None (occurrence: None)
  Receive Date: 20120503
  Receipt Date: 20120427
  Transmission Date: 20120825
  Serious: Yes (Life-Threatening, Hospitalization, Other)
  Sender: FDA-Public Use
  Company Number: PT-GLAXOSMITHKLINE-B0799252A

PATIENT
  Sex: Female

DRUGS (9)
  1. VANCOMYCIN [Concomitant]
  2. METRONIDAZOLE [Concomitant]
  3. POTASSIUM CHLORIDE [Concomitant]
  4. IRON [Concomitant]
  5. MEROPENEM [Concomitant]
     Indication: ABSCESS
  6. ENOXAPARIN SODIUM [Concomitant]
  7. MULTI-VITAMIN [Concomitant]
  8. ANTI-DEPRESSANT (UNKNOWN) [Concomitant]
  9. CEFUROXIME AXETIL [Suspect]
     Indication: ABSCESS
     Route: 048
     Dates: start: 20120301, end: 20120409

REACTIONS (7)
  - CLOSTRIDIUM DIFFICILE COLITIS [None]
  - CLOSTRIDIAL INFECTION [None]
  - HYPOKALAEMIA [None]
  - DIARRHOEA HAEMORRHAGIC [None]
  - FATIGUE [None]
  - HYPOALBUMINAEMIA [None]
  - ANAEMIA [None]
